FAERS Safety Report 5165305-8 (Version None)
Quarter: 2006Q4

REPORT INFORMATION
  Report Type: 
  Country: None (occurrence: None)
  Receive Date: 20061124
  Receipt Date: 20061114
  Transmission Date: 20070319
  Serious: Yes (Other)
  Sender: FDA-Public Use
  Company Number: 2006143028

PATIENT
  Sex: Male

DRUGS (1)
  1. NEURONTIN [Suspect]
     Indication: DIABETIC NEUROPATHY
     Dosage: 600 MG

REACTIONS (3)
  - CONDITION AGGRAVATED [None]
  - TOURETTE'S DISORDER [None]
  - UNEVALUABLE EVENT [None]
